FAERS Safety Report 5953988-1 (Version None)
Quarter: 2008Q4

REPORT INFORMATION
  Report Type: 
  Country: None (occurrence: None)
  Receive Date: 20081114
  Receipt Date: 20081106
  Transmission Date: 20090506
  Serious: Yes (Hospitalization)
  Sender: FDA-Public Use
  Company Number: BE-ABBOTT-08P-013-0486704-00

PATIENT
  Sex: Female

DRUGS (13)
  1. HUMIRA [Suspect]
     Indication: PSORIATIC ARTHROPATHY
     Route: 058
     Dates: start: 20070901, end: 20080119
  2. HUMIRA [Suspect]
     Dates: start: 20080218
  3. CETIRIZINE HCL [Concomitant]
     Indication: DRUG USE FOR UNKNOWN INDICATION
     Dosage: 10 MG DAILY AS NEEDED
  4. CITALOPRAM HYDROBROMIDE [Concomitant]
     Indication: DRUG USE FOR UNKNOWN INDICATION
  5. CYTOZYMETRACHEA [Concomitant]
     Indication: DRUG USE FOR UNKNOWN INDICATION
     Dosage: ONE IN THE EVENING
  6. FEMODENE [Concomitant]
     Indication: DRUG USE FOR UNKNOWN INDICATION
  7. METHOTREXATE SODIUM [Concomitant]
     Indication: DRUG USE FOR UNKNOWN INDICATION
     Dates: end: 20080119
  8. METHOTREXATE SODIUM [Concomitant]
     Dates: start: 20080218
  9. FOLIC ACID [Concomitant]
     Indication: DRUG USE FOR UNKNOWN INDICATION
  10. LORAZEPAM [Concomitant]
     Indication: DRUG USE FOR UNKNOWN INDICATION
     Dosage: 1/2 PER EVENING
  11. SULFASALAZINE [Concomitant]
     Indication: DRUG USE FOR UNKNOWN INDICATION
     Dosage: EC 6/D
  12. RANITIDINE [Concomitant]
     Indication: DRUG USE FOR UNKNOWN INDICATION
     Dosage: 1 PER DAY AS NEEDED
  13. VOLTAREN R [Concomitant]
     Indication: DRUG USE FOR UNKNOWN INDICATION
     Dosage: 1 - 2 PER DAY

REACTIONS (2)
  - IMPAIRED HEALING [None]
  - OVARIAN CYST [None]
